FAERS Safety Report 11313250 (Version 1)
Quarter: 2015Q3

REPORT INFORMATION
  Report Type: Spontaneous
  Country: US (occurrence: US)
  Receive Date: 20150727
  Receipt Date: 20150727
  Transmission Date: 20151125
  Serious: No
  Sender: FDA-Public Use
  Company Number: US-ABBVIE-15P-163-1375744-00

PATIENT

DRUGS (2)
  1. WP THYROID [Concomitant]
     Indication: PRODUCT USED FOR UNKNOWN INDICATION
  2. SYNTHROID [Suspect]
     Active Substance: LEVOTHYROXINE SODIUM
     Indication: PRODUCT USED FOR UNKNOWN INDICATION
     Route: 065

REACTIONS (7)
  - Sluggishness [Unknown]
  - Feeling abnormal [Unknown]
  - Dry skin [Unknown]
  - Pain [Unknown]
  - Lethargy [Unknown]
  - Myalgia [Unknown]
  - Paraesthesia [Unknown]
